FAERS Safety Report 15809972 (Version 1)
Quarter: 2019Q1

REPORT INFORMATION
  Report Type: Spontaneous
  Country: US (occurrence: US)
  Receive Date: 20190111
  Receipt Date: 20190111
  Transmission Date: 20190417
  Serious: No
  Sender: FDA-Public Use
  Company Number: US-ROCHE-2117525

PATIENT
  Age: 57 Year
  Sex: Female
  Weight: 106.24 kg

DRUGS (4)
  1. RITUXAN [Suspect]
     Active Substance: RITUXIMAB
     Route: 042
     Dates: start: 20180424
  2. GABAPENTIN. [Concomitant]
     Active Substance: GABAPENTIN
     Dosage: ONGOING: YES
     Route: 065
  3. METFORMIN [Concomitant]
     Active Substance: METFORMIN HYDROCHLORIDE
     Dosage: ONGOING: YES
     Route: 065
  4. RITUXAN [Suspect]
     Active Substance: RITUXIMAB
     Indication: RHEUMATOID ARTHRITIS
     Dosage: ONGOING: YES
     Route: 042
     Dates: start: 2012

REACTIONS (6)
  - Asthenia [Not Recovered/Not Resolved]
  - Headache [Not Recovered/Not Resolved]
  - Confusional state [Not Recovered/Not Resolved]
  - Balance disorder [Not Recovered/Not Resolved]
  - Peripheral swelling [Not Recovered/Not Resolved]
  - Pain [Not Recovered/Not Resolved]

NARRATIVE: CASE EVENT DATE: 20180425
